FAERS Safety Report 5073623-7 (Version None)
Quarter: 2006Q3

REPORT INFORMATION
  Report Type: 
  Country: None (occurrence: None)
  Receive Date: 20060727
  Receipt Date: 20060705
  Transmission Date: 20061208
  Serious: Yes (Hospitalization, Other)
  Sender: FDA-Public Use
  Company Number: 2006BH011615

PATIENT
  Age: 51 Year
  Sex: Male
  Weight: 58.9676 kg

DRUGS (14)
  1. GAMMAGARD LIQUID [Suspect]
     Indication: CHRONIC INFLAMMATORY DEMYELINATING POLYRADICULONEUROPATHY
     Dosage: 24 GM;UNK;IV
     Route: 042
     Dates: start: 20060626, end: 20060629
  2. GAMMAGARD LIQUID [Suspect]
  3. LYRICA [Concomitant]
  4. MULTIVITAMIN [Concomitant]
  5. VITAMIN B COMPLEX CAP [Concomitant]
  6. FERROUS SULFATE TAB [Concomitant]
  7. PERCOCET [Concomitant]
  8. ZOLOFT [Concomitant]
  9. AMBIEN [Concomitant]
  10. PREVACID [Concomitant]
  11. CLONAZEPAM [Concomitant]
  12. IMURAN [Concomitant]
  13. ASCORBIC ACID [Concomitant]
  14. VITAMIN B-12 [Concomitant]

REACTIONS (2)
  - OEDEMA [None]
  - THROMBOSIS [None]
